FAERS Safety Report 8525766-0 (Version None)
Quarter: 2012Q3

REPORT INFORMATION
  Report Type: 
  Country: None (occurrence: None)
  Receive Date: 20120720
  Receipt Date: 20120710
  Transmission Date: 20120928
  Serious: Yes (Death, Hospitalization, Other)
  Sender: FDA-Public Use
  Company Number: US-009507513-1206USA04986

PATIENT

DRUGS (2)
  1. VORICONAZOLE [Concomitant]
     Indication: ANTIFUNGAL PROPHYLAXIS
     Dosage: 200 MG, BID
  2. CANCIDAS [Suspect]
     Route: 042

REACTIONS (2)
  - SEPTIC SHOCK [None]
  - PNEUMONIA BACTERIAL [None]
